FAERS Safety Report 8914469 (Version 2)
Quarter: 2012Q4

REPORT INFORMATION
  Report Type: 
  Country: US (occurrence: US)
  Receive Date: 20121119
  Receipt Date: 20121204
  Transmission Date: 20130627
  Serious: No
  Sender: FDA-Public Use
  Company Number: US-009507513-1211USA003232

PATIENT
  Age: 56 Year
  Sex: Female
  Weight: 79.37 kg

DRUGS (8)
  1. CLARITIN-D 24 HOUR [Suspect]
     Indication: HYPERSENSITIVITY
     Dosage: 10 mg, qd
     Route: 048
     Dates: start: 20120901, end: 20120907
  2. CLARITIN-D 24 HOUR [Suspect]
     Indication: LACRIMATION INCREASED
  3. CLARITIN-D 24 HOUR [Suspect]
     Indication: EYE PRURITUS
  4. CLARITIN-D 24 HOUR [Suspect]
     Indication: NASAL CONGESTION
  5. ACTONEL [Concomitant]
     Indication: OSTEOARTHRITIS
     Dosage: UNK, Unknown
  6. ONE-A-DAY ESSENTIAL VITAMINS [Concomitant]
     Indication: PRODUCT USED FOR UNKNOWN INDICATION
     Dosage: UNK, Unknown
  7. CALCIUM (UNSPECIFIED) [Concomitant]
     Indication: PRODUCT USED FOR UNKNOWN INDICATION
     Dosage: UNK, Unknown
  8. MELOXICAM [Concomitant]
     Indication: MIGRAINE
     Dosage: UNK, Unknown

REACTIONS (2)
  - Somnolence [Recovered/Resolved]
  - Drug ineffective [Unknown]
